FAERS Safety Report 20757902 (Version 1)
Quarter: 2022Q2

REPORT INFORMATION
  Report Type: Spontaneous
  Country: US (occurrence: None)
  Receive Date: 20220427
  Receipt Date: 20220427
  Transmission Date: 20220721
  Serious: Yes (Hospitalization)
  Sender: FDA-Public Use
  Company Number: None

PATIENT
  Age: 71 Year
  Sex: Female
  Weight: 59.42 kg

DRUGS (23)
  1. ZOLEDRONIC [Suspect]
     Active Substance: ZOLEDRONIC ACID
     Indication: Osteoporosis
     Dosage: FREQUENCY : EVERY YEAR;?
     Route: 042
     Dates: start: 20220323
  2. NYSTATIN [Concomitant]
     Active Substance: NYSTATIN
  3. OMEPRAZOLE [Concomitant]
     Active Substance: OMEPRAZOLE
  4. ZOFRAN [Concomitant]
     Active Substance: ONDANSETRON HYDROCHLORIDE
  5. KLOR-CON [Concomitant]
     Active Substance: POTASSIUM CHLORIDE
  6. PREDNISONE [Concomitant]
     Active Substance: PREDNISONE
  7. LYRICA [Concomitant]
     Active Substance: PREGABALIN
  8. INDERAL LA [Concomitant]
     Active Substance: PROPRANOLOL HYDROCHLORIDE
  9. TRAZODONE [Concomitant]
     Active Substance: TRAZODONE HYDROCHLORIDE
  10. KENALOG [Concomitant]
     Active Substance: TRIAMCINOLONE ACETONIDE
  11. MAXZIDE [Concomitant]
     Active Substance: HYDROCHLOROTHIAZIDE\TRIAMTERENE
  12. LIPITOR [Concomitant]
     Active Substance: ATORVASTATIN CALCIUM
  13. WELLBUTRIN XL [Concomitant]
     Active Substance: BUPROPION HYDROCHLORIDE
  14. cholchicine [Concomitant]
  15. CYMBALTA [Concomitant]
     Active Substance: DULOXETINE HYDROCHLORIDE
  16. ETODOLAC [Concomitant]
     Active Substance: ETODOLAC
  17. difulcan [Concomitant]
  18. PLAQUENIL [Concomitant]
     Active Substance: HYDROXYCHLOROQUINE SULFATE
  19. LOSARTAN [Concomitant]
     Active Substance: LOSARTAN
  20. Adult mujltivit [Concomitant]
  21. Vit D 3 [Concomitant]
  22. IBUPROFEN [Concomitant]
     Active Substance: IBUPROFEN
  23. FISH OIL [Concomitant]
     Active Substance: FISH OIL

REACTIONS (7)
  - Visual impairment [None]
  - Muscular weakness [None]
  - Abdominal discomfort [None]
  - Gait disturbance [None]
  - Dysstasia [None]
  - Loss of personal independence in daily activities [None]
  - Infusion related reaction [None]

NARRATIVE: CASE EVENT DATE: 20220323
